FAERS Safety Report 4323824-8 (Version None)
Quarter: 2004Q1

REPORT INFORMATION
  Report Type: 
  Country: None (occurrence: None)
  Receive Date: 20040324
  Receipt Date: 20040324
  Transmission Date: 20041129
  Serious: Yes (Life-Threatening)
  Sender: FDA-Public Use
  Company Number: None

PATIENT
  Age: 76 Year
  Sex: Male
  Weight: 72.1219 kg

DRUGS (1)
  1. GEODON [Suspect]
     Indication: AGITATION
     Dosage: 20 MG BID ORAL (5 DOSES)
     Route: 048
     Dates: start: 20040319, end: 20040321

REACTIONS (5)
  - BLOOD PRESSURE DECREASED [None]
  - CEREBROVASCULAR ACCIDENT [None]
  - COMA [None]
  - PUPIL FIXED [None]
  - PUPILS UNEQUAL [None]
